FAERS Safety Report 7961742-4 (Version None)
Quarter: 2011Q4

REPORT INFORMATION
  Report Type: 
  Country: None (occurrence: None)
  Receive Date: 20111207
  Receipt Date: 20111123
  Transmission Date: 20120403
  Serious: Yes (Hospitalization)
  Sender: FDA-Public Use
  Company Number: IE-MEDIMMUNE-MEDI-0014013

PATIENT
  Weight: 4.36 kg

DRUGS (3)
  1. FERROUS SULFATE TAB [Concomitant]
  2. SYNAGIS [Suspect]
     Route: 030
     Dates: start: 20111024, end: 20111024
  3. KAPSOVIT [Concomitant]

REACTIONS (2)
  - APNOEIC ATTACK [None]
  - ANAEMIA [None]
